FAERS Safety Report 7355868-6 (Version None)
Quarter: 2011Q1

REPORT INFORMATION
  Report Type: 
  Country: None (occurrence: None)
  Receive Date: 20110311
  Receipt Date: 20110311
  Transmission Date: 20110831
  Serious: Yes (Other)
  Sender: FDA-Public Use
  Company Number: None

PATIENT
  Age: 55 Year
  Sex: Female
  Weight: 52.8 kg

DRUGS (1)
  1. NOW? CALCIUM + MAGNESIUM SOFTGELS CA CARBONATE 1G,VIT D3 600IU,MAG 500 [Suspect]
     Indication: VITAMIN D DEFICIENCY
     Dosage: 3 CAPSULES DAILY ORAL
     Route: 048
     Dates: start: 20101101, end: 20110201

REACTIONS (1)
  - VITAMIN D INCREASED [None]
